FAERS Safety Report 6327771-1 (Version None)
Quarter: 2009Q3

REPORT INFORMATION
  Report Type: 
  Country: None (occurrence: None)
  Receive Date: 20090824
  Receipt Date: 20090810
  Transmission Date: 20100115
  Serious: Yes (Other)
  Sender: FDA-Public Use
  Company Number: DSU-2009-01627

PATIENT
  Age: 65 Year
  Sex: Male

DRUGS (1)
  1. BENICAR [Suspect]
     Indication: DRUG USE FOR UNKNOWN INDICATION
     Dosage: 40 MG (40 MG,QD), PER ORAL
     Route: 048

REACTIONS (1)
  - ANAPHYLACTIC REACTION [None]
